FAERS Safety Report 7860612-X (Version None)
Quarter: 2011Q4

REPORT INFORMATION
  Report Type: 
  Country: None (occurrence: None)
  Receive Date: 20111027
  Receipt Date: 20111018
  Transmission Date: 20120403
  Serious: Yes (Other)
  Sender: FDA-Public Use
  Company Number: US-ASTRAZENECA-2011SE61405

PATIENT
  Age: 80 Year
  Sex: Male
  Weight: 86.2 kg

DRUGS (33)
  1. MULTI-VITAMIN [Concomitant]
  2. FLU SHOT [Concomitant]
  3. TETANUS IMMUNE GLOBULIN (HUMAN) [Concomitant]
  4. HYDROCODONE BITARTRATE [Concomitant]
  5. AVELOX [Concomitant]
  6. ALPRAZOLAM [Concomitant]
  7. TEARS II [Concomitant]
     Dosage: AS NEEDED
  8. ZEASORB-AF. [Concomitant]
  9. CALCIUM CARBONATE [Concomitant]
  10. NITROSTAT [Concomitant]
     Indication: CHEST PAIN
     Dosage: AS NEEDED
  11. K VITAMIN [Concomitant]
  12. PHNEMOINA SHOT [Concomitant]
  13. NEXIUM [Suspect]
     Indication: GASTROOESOPHAGEAL REFLUX DISEASE
     Route: 048
     Dates: start: 19910101, end: 20090101
  14. BETAMETHASONE DIPROPIONATE, CLOTRIMAZOLE CREAM UPS [Concomitant]
  15. OMEGA RED 3 KRILL OIL [Concomitant]
  16. LEVAQUIN [Concomitant]
     Indication: HELICOBACTER INFECTION
  17. METRONIDAZOLE [Concomitant]
     Indication: GASTROINTESTINAL BACTERIAL INFECTION
  18. COLAZAL [Concomitant]
  19. AMLODIPINE [Concomitant]
  20. LANSOPRAZOLE [Concomitant]
  21. RAMIPRIL [Concomitant]
  22. ZOCOR [Concomitant]
  23. D VITAMIN [Concomitant]
  24. PREVACID [Concomitant]
  25. TOPROL-XL [Concomitant]
  26. MICONAZOLE NITRATE [Concomitant]
  27. PLAVIX [Concomitant]
  28. PAROXETINE HCL [Concomitant]
  29. GAVISCON [Concomitant]
     Indication: GASTRIC DISORDER
     Dosage: AS NEEDED
  30. BIAXIN [Concomitant]
  31. HYDROCHLOROTHIAZIDE [Concomitant]
  32. TEKTURNA HCT [Concomitant]
     Dosage: 300 MG/ 25 MG AT 7:00
  33. TETROCYCLINE [Concomitant]

REACTIONS (15)
  - CARDIAC HYPERTROPHY [None]
  - COLITIS ULCERATIVE [None]
  - HELICOBACTER INFECTION [None]
  - CAROTID ARTERIOSCLEROSIS [None]
  - GASTRITIS [None]
  - URTICARIA [None]
  - RETINAL ARTERY OCCLUSION [None]
  - HYPERTENSION [None]
  - GASTROOESOPHAGEAL REFLUX DISEASE [None]
  - HIATUS HERNIA [None]
  - GASTRIC ULCER [None]
  - SKIN CANCER [None]
  - SPINAL OSTEOARTHRITIS [None]
  - ARTHRITIS [None]
  - ULCER [None]
